FAERS Safety Report 5068599-2 (Version None)
Quarter: 2006Q3

REPORT INFORMATION
  Report Type: 
  Country: None (occurrence: None)
  Receive Date: 20060802
  Receipt Date: 20051222
  Transmission Date: 20061208
  Serious: No
  Sender: FDA-Public Use
  Company Number: US-BRISTOL-MYERS SQUIBB COMPANY-13227707

PATIENT
  Age: 81 Year
  Sex: Female

DRUGS (4)
  1. COUMADIN [Suspect]
     Dates: start: 20050701
  2. LEVSIN [Concomitant]
  3. CELEBREX [Concomitant]
  4. MAXZIDE [Concomitant]

REACTIONS (1)
  - PROTHROMBIN TIME SHORTENED [None]
